FAERS Safety Report 8515512-9 (Version None)
Quarter: 2012Q3

REPORT INFORMATION
  Report Type: 
  Country: None (occurrence: None)
  Receive Date: 20120717
  Receipt Date: 20120515
  Transmission Date: 20120928
  Serious: No
  Sender: FDA-Public Use
  Company Number: US-009507513-1207USA002673

PATIENT

DRUGS (1)
  1. LOTRIMIN ULTRA [Suspect]
     Indication: PRODUCT USED FOR UNKNOWN INDICATION
     Dosage: UNK, QD
     Route: 061

REACTIONS (3)
  - DRUG INEFFECTIVE [None]
  - BLISTER [None]
  - CONDITION AGGRAVATED [None]
